FAERS Safety Report 10184966 (Version 1)
Quarter: 2014Q2

REPORT INFORMATION
  Report Type: Spontaneous
  Country: US (occurrence: None)
  Receive Date: 20140520
  Receipt Date: 20140520
  Transmission Date: 20141212
  Serious: No
  Sender: FDA-Public Use
  Company Number: None

PATIENT
  Age: 24 Year
  Sex: Female
  Weight: 104.33 kg

DRUGS (1)
  1. COPPER IUD [Suspect]

REACTIONS (8)
  - Syncope [None]
  - Vomiting [None]
  - Gait disturbance [None]
  - Exercise tolerance decreased [None]
  - Pain [None]
  - Haemorrhage [None]
  - Menorrhagia [None]
  - Muscle spasms [None]
